FAERS Safety Report 25337450 (Version 1)
Quarter: 2025Q2

REPORT INFORMATION
  Report Type: Spontaneous
  Country: US (occurrence: None)
  Receive Date: 20250520
  Receipt Date: 20250520
  Transmission Date: 20250716
  Serious: Yes (Other)
  Sender: FDA-CTU
  Company Number: None

PATIENT
  Age: 94 Year
  Sex: Female

DRUGS (2)
  1. XDEMVY [Suspect]
     Active Substance: LOTILANER
     Indication: Ocular demodicosis
     Dosage: FREQUENCY : TWICE A DAY;?
     Route: 047
     Dates: start: 20250227, end: 20250414
  2. systane lubricat eye drops [Concomitant]

REACTIONS (4)
  - Vertigo [None]
  - Gait inability [None]
  - Movement disorder [None]
  - Therapy cessation [None]

NARRATIVE: CASE EVENT DATE: 20250414
